FAERS Safety Report 5378138-4 (Version None)
Quarter: 2007Q3

REPORT INFORMATION
  Report Type: 
  Country: None (occurrence: None)
  Receive Date: 20070705
  Receipt Date: 20070625
  Transmission Date: 20080115
  Serious: Yes (Hospitalization)
  Sender: FDA-Public Use
  Company Number: PHNU2007DE02248

PATIENT
  Sex: Female

DRUGS (8)
  1. CLOZAPINE [Suspect]
     Indication: SCHIZOAFFECTIVE DISORDER
     Dosage: 150 MG/DAY
     Route: 048
     Dates: start: 20060818, end: 20060830
  2. CLOZAPINE [Suspect]
     Dosage: UP TO 250 MG/DAY
     Route: 048
     Dates: start: 20060911
  3. CLOZAPINE [Suspect]
     Dosage: 250 MG/DAY
     Route: 048
     Dates: start: 20061013
  4. ABILIFY [Concomitant]
     Dosage: 15 MG/DAY
     Route: 048
     Dates: start: 20051101, end: 20060905
  5. ABILIFY [Concomitant]
     Dosage: 20 MG/DAY
     Route: 048
     Dates: start: 20060906, end: 20060911
  6. ABILIFY [Concomitant]
     Dosage: 25 MG/DAY
     Route: 048
     Dates: start: 20060912
  7. CARBAMAZEPINE [Concomitant]
     Dosage: 400 MG/DAY
     Route: 048
     Dates: start: 20050101, end: 20060827
  8. LEVOTHYROXINE SODIUM [Concomitant]
     Indication: HYPOTHYROIDISM
     Dosage: 75 UG/DAY
     Route: 048
     Dates: start: 20010101

REACTIONS (5)
  - ANXIETY [None]
  - C-REACTIVE PROTEIN INCREASED [None]
  - GENERAL PHYSICAL HEALTH DETERIORATION [None]
  - INFLUENZA LIKE ILLNESS [None]
  - PYREXIA [None]
